FAERS Safety Report 20692752 (Version 1)
Quarter: 2022Q2

REPORT INFORMATION
  Report Type: Spontaneous
  Country: AR (occurrence: AR)
  Receive Date: 20220409
  Receipt Date: 20220409
  Transmission Date: 20220721
  Serious: Yes (Hospitalization)
  Sender: FDA-Public Use
  Company Number: AR-NOVARTISPH-NVSC2022AR081053

PATIENT
  Sex: Female

DRUGS (5)
  1. CALCIUM [Suspect]
     Active Substance: CALCIUM
     Indication: Renal transplant
     Dosage: 2 DOSAGE FORM, Q6H, STARTED 5 OR 6 YEARS AGO
     Route: 065
  2. CALCIUM [Suspect]
     Active Substance: CALCIUM
     Indication: Dilatation intrahepatic duct congenital
  3. CALCIUM [Suspect]
     Active Substance: CALCIUM
     Indication: Hypothyroidism
  4. CALCIUM [Suspect]
     Active Substance: CALCIUM
     Indication: Parathyroidectomy
  5. CALCIUM [Suspect]
     Active Substance: CALCIUM
     Indication: Hyperthyroidism

REACTIONS (3)
  - Cardiac disorder [Unknown]
  - Burning sensation [Unknown]
  - Hypocalcaemia [Unknown]
